FAERS Safety Report 24459077 (Version 1)
Quarter: 2024Q4

REPORT INFORMATION
  Report Type: Spontaneous
  Country: US (occurrence: US)
  Receive Date: 20241018
  Receipt Date: 20241018
  Transmission Date: 20250115
  Serious: No
  Sender: ROCHE
  Company Number: US-ROCHE-3527957

PATIENT
  Age: 44 Year
  Sex: Male

DRUGS (8)
  1. RITUXIMAB [Suspect]
     Active Substance: RITUXIMAB
     Indication: Pemphigus
     Dosage: ON DAY 1
     Route: 041
  2. RITUXIMAB [Suspect]
     Active Substance: RITUXIMAB
     Dosage: ON DAY 15
     Route: 041
  3. PREDNISONE [Concomitant]
     Active Substance: PREDNISONE
     Dosage: EVERY MORNING
     Route: 048
  4. PREDNISONE [Concomitant]
     Active Substance: PREDNISONE
     Dosage: EVERY EVENING
     Route: 048
  5. PREDNISONE [Concomitant]
     Active Substance: PREDNISONE
  6. MINOCYCLINE [Concomitant]
     Active Substance: MINOCYCLINE HYDROCHLORIDE
     Route: 048
  7. NICOTINAMIDE [Concomitant]
     Active Substance: NIACINAMIDE
     Route: 048
  8. AZATHIOPRINE [Concomitant]
     Active Substance: AZATHIOPRINE

REACTIONS (3)
  - Nausea [Unknown]
  - Chills [Unknown]
  - Myalgia [Unknown]
